FAERS Safety Report 5909689-9 (Version None)
Quarter: 2008Q4

REPORT INFORMATION
  Report Type: 
  Country: None (occurrence: None)
  Receive Date: 20081007
  Receipt Date: 20080929
  Transmission Date: 20090506
  Serious: Yes (Other)
  Sender: FDA-Public Use
  Company Number: IL-RANBAXY-2008RR-18237

PATIENT
  Age: 68 Year
  Sex: Female

DRUGS (3)
  1. METFORMIN HCL [Suspect]
     Dosage: 850 MG, TID
  2. REPAGLINIDE [Concomitant]
     Dosage: 1 MG, TID
  3. RAMIPRIL [Concomitant]
     Dosage: 1.25 MG, QD

REACTIONS (1)
  - HAEMOLYTIC ANAEMIA [None]
